FAERS Safety Report 10011683 (Version 1)
Quarter: 2014Q1

REPORT INFORMATION
  Report Type: Spontaneous
  Country: US (occurrence: None)
  Receive Date: 20140312
  Receipt Date: 20140312
  Transmission Date: 20141002
  Serious: Yes (Death, Hospitalization)
  Sender: FDA-Public Use
  Company Number: UTC-043732

PATIENT
  Sex: Female
  Weight: 50.45 kg

DRUGS (3)
  1. REMODULIN (1 MILLIGRAM/MILLILITERS, INJECTION FOR INFUSION) (TREPROSTINIL SODIUM) [Suspect]
     Indication: COR PULMONALE CHRONIC
     Dosage: (0.043 UG/KG, 1 IN 1 MIN)
     Route: 041
     Dates: start: 20111122
  2. ADCIRCA (TADALAFIL) (UNKNOWN) [Concomitant]
  3. WARFARIN (UNKNOWN) [Concomitant]

REACTIONS (1)
  - Dyspnoea [None]
